FAERS Safety Report 10720286 (Version 1)
Quarter: 2015Q1

REPORT INFORMATION
  Report Type: Spontaneous
  Country: US (occurrence: US)
  Receive Date: 20150119
  Receipt Date: 20150119
  Transmission Date: 20150721
  Serious: No
  Sender: FDA-Public Use
  Company Number: US-TARO-2014P1003402

PATIENT
  Age: 84 Year
  Sex: Male
  Weight: 108.86 kg

DRUGS (18)
  1. CARDURA [Concomitant]
     Active Substance: DOXAZOSIN MESYLATE
  2. TAMSULOSIN [Concomitant]
     Active Substance: TAMSULOSIN
  3. SIMBRINZA 1% [Concomitant]
     Dosage: 1 BID
  4. CHOLESTYRAMINE POWDER [Concomitant]
  5. FUROSEMIDE. [Concomitant]
     Active Substance: FUROSEMIDE
  6. POTASSIUM CHLORIDE. [Concomitant]
     Active Substance: POTASSIUM CHLORIDE
  7. SIMVASTATIN. [Concomitant]
     Active Substance: SIMVASTATIN
  8. BENADRYL [Concomitant]
     Active Substance: DIPHENHYDRAMINE HYDROCHLORIDE
     Dosage: 125-250 MG,PRN
  9. CATAPRES PATCH [Concomitant]
     Dosage: .2 QW
  10. VOLTAREN 1% GEL [Concomitant]
     Dosage: QID
     Route: 061
  11. ALEVE [Concomitant]
     Active Substance: NAPROXEN SODIUM
  12. METFORMIN [Concomitant]
     Active Substance: METFORMIN HYDROCHLORIDE
  13. TELMISARTAN. [Concomitant]
     Active Substance: TELMISARTAN
  14. ALBUTEROL INHALER [Concomitant]
     Active Substance: ALBUTEROL
  15. DIFLORASONE DIACETATE OINTMENT [Concomitant]
     Dosage: QD
  16. LABETALOL [Concomitant]
     Active Substance: LABETALOL\LABETALOL HYDROCHLORIDE
  17. LOMOTIL [Concomitant]
     Active Substance: ATROPINE SULFATE\DIPHENOXYLATE HYDROCHLORIDE
     Dosage: 2.5-5 MG,PRN
  18. ECONAZOLE NITRATE CREAM 1% [Suspect]
     Active Substance: ECONAZOLE NITRATE
     Indication: FUNGAL INFECTION
     Dosage: QD
     Route: 061
     Dates: start: 20140406, end: 20140407

REACTIONS (4)
  - Burns second degree [Recovering/Resolving]
  - Application site erythema [Recovering/Resolving]
  - Product quality issue [Recovering/Resolving]
  - Wound secretion [Recovering/Resolving]

NARRATIVE: CASE EVENT DATE: 201404
